FAERS Safety Report 11246445 (Version 3)
Quarter: 2017Q1

REPORT INFORMATION
  Report Type: Report from Study
  Country: DE (occurrence: DE)
  Receive Date: 20150708
  Receipt Date: 20170302
  Transmission Date: 20170428
  Serious: Yes (Death)
  Sender: FDA-Public Use
  Company Number: DE-ROCHE-1603905

PATIENT
  Age: 63 Year
  Sex: Male
  Weight: 69 kg

DRUGS (12)
  1. TEMSIROLIMUS [Suspect]
     Active Substance: TEMSIROLIMUS
     Indication: DIFFUSE LARGE B-CELL LYMPHOMA
     Dosage: 03/JUN/2015, LAST DOSE ADMINISTERED WAS 15 MG, CYCLICAL ON DAY 1 AND 18
     Route: 065
     Dates: start: 20150326
  2. CYTARABINE. [Suspect]
     Active Substance: CYTARABINE
     Indication: DIFFUSE LARGE B-CELL LYMPHOMA
     Dosage: ON 30/MAY/2015, LAST DOSE ADMINISTERED WAS 7880 MG
     Route: 065
     Dates: start: 20150329
  3. CLONT (GERMANY) [Concomitant]
     Route: 065
     Dates: start: 20150605, end: 20150606
  4. CISPLATIN. [Suspect]
     Active Substance: CISPLATIN
     Indication: DIFFUSE LARGE B-CELL LYMPHOMA
     Dosage: ON 29/MAY/2015, LAST DOSE ADMINISTERED WAS 197 MG
     Route: 065
     Dates: start: 20150328
  5. RITUXIMAB [Suspect]
     Active Substance: RITUXIMAB
     Indication: DIFFUSE LARGE B-CELL LYMPHOMA
     Dosage: ON 28/MAY/2015, LAST DOSE ADMINISTERED WAS 739 MG
     Route: 065
     Dates: start: 20150327
  6. FILGRASTIM [Concomitant]
     Active Substance: FILGRASTIM
     Dosage: 2 X 48000 UNITS
     Route: 065
     Dates: start: 20150529, end: 20150606
  7. CITALOPRAM [Concomitant]
     Active Substance: CITALOPRAM HYDROBROMIDE
     Route: 065
     Dates: start: 20150527, end: 20150606
  8. CLEXANE [Concomitant]
     Active Substance: ENOXAPARIN SODIUM
     Route: 065
     Dates: start: 20150527, end: 20150605
  9. REMERGIL [Concomitant]
     Active Substance: MIRTAZAPINE
     Route: 065
     Dates: start: 20150527, end: 20150606
  10. FENTANYL. [Concomitant]
     Active Substance: FENTANYL
     Dosage: DOSE: 37.5 UG/H, EVERY 3 DAYS
     Route: 065
     Dates: start: 20150527, end: 20150606
  11. DEXAMETHASONE. [Suspect]
     Active Substance: DEXAMETHASONE
     Indication: DIFFUSE LARGE B-CELL LYMPHOMA
     Dosage: ON 01/JUN/2015, LAST DOSE ADMINISTERED WAS 40 MG
     Route: 065
     Dates: start: 20150328
  12. PANTOPRAZOLE [Concomitant]
     Active Substance: PANTOPRAZOLE SODIUM
     Route: 065
     Dates: end: 20150606

REACTIONS (1)
  - Cerebral haemorrhage [Fatal]

NARRATIVE: CASE EVENT DATE: 20150606
